FAERS Safety Report 25405343 (Version 1)
Quarter: 2025Q2

REPORT INFORMATION
  Report Type: Spontaneous
  Country: HU (occurrence: HU)
  Receive Date: 20250606
  Receipt Date: 20250606
  Transmission Date: 20250716
  Serious: Yes (Life-Threatening)
  Sender: ROCHE
  Company Number: HU-ROCHE-10000305226

PATIENT

DRUGS (2)
  1. OCREVUS [Suspect]
     Active Substance: OCRELIZUMAB
     Indication: Product used for unknown indication
     Route: 050
  2. KESIMPTA [Concomitant]
     Active Substance: OFATUMUMAB

REACTIONS (2)
  - Respiratory tract inflammation [Unknown]
  - Dyspnoea [Unknown]
